FAERS Safety Report 6120333-0 (Version None)
Quarter: 2009Q1

REPORT INFORMATION
  Report Type: 
  Country: None (occurrence: None)
  Receive Date: 20090312
  Receipt Date: 20090312
  Transmission Date: 20090719
  Serious: Yes (Other)
  Sender: FDA-Public Use
  Company Number: None

PATIENT
  Sex: Male

DRUGS (5)
  1. BUSPIRONE HCL [Suspect]
     Dosage: 30MG BID PO
     Route: 048
     Dates: start: 20090306
  2. BUSPIRONE HCL [Suspect]
     Dosage: 30MG BID PO
     Route: 048
     Dates: start: 20090311
  3. ATENOLOL AND CHLORTHALIDONE [Concomitant]
  4. SIMVASTATIN [Concomitant]
  5. ALLEGRA D 24 HOUR [Concomitant]

REACTIONS (6)
  - ANXIETY [None]
  - DRUG INEFFECTIVE [None]
  - IRRITABILITY [None]
  - NERVOUSNESS [None]
  - THERAPEUTIC RESPONSE UNEXPECTED WITH DRUG SUBSTITUTION [None]
  - TREMOR [None]
